FAERS Safety Report 10179459 (Version 2)
Quarter: 2014Q2

REPORT INFORMATION
  Report Type: Spontaneous
  Country: US (occurrence: None)
  Receive Date: 20140416
  Receipt Date: 20140604
  Transmission Date: 20141212
  Serious: Yes (Other)
  Sender: FDA-Public Use
  Company Number: 163-POMAL-14021378

PATIENT
  Age: 68 Year
  Sex: Female

DRUGS (1)
  1. POMALYST (POMALIDOMIDE) (CAPSULE) [Suspect]
     Indication: PLASMA CELL MYELOMA
     Dosage: 4 MG, 21 IN 28 D
     Route: 048
     Dates: start: 20131022

REACTIONS (1)
  - Plasma cell myeloma [None]
